FAERS Safety Report 9817702 (Version 1)
Quarter: 2014Q1

REPORT INFORMATION
  Report Type: Spontaneous
  Country: US (occurrence: US)
  Receive Date: 20140115
  Receipt Date: 20140115
  Transmission Date: 20141002
  Serious: Yes (Hospitalization)
  Sender: FDA-Public Use
  Company Number: US-ASTRAZENECA-2014SE01578

PATIENT
  Age: 60 Year
  Sex: Male

DRUGS (4)
  1. BRILINTA [Suspect]
     Indication: ACUTE CORONARY SYNDROME
     Route: 048
     Dates: start: 201311, end: 201311
  2. BRILINTA [Suspect]
     Indication: CORONARY ARTERY DISEASE
     Route: 048
     Dates: start: 201311, end: 201311
  3. BRILINTA [Suspect]
     Indication: STENT PLACEMENT
     Route: 048
     Dates: start: 201311, end: 201311
  4. ASPIRIN [Concomitant]
     Indication: SUPPORTIVE CARE
     Route: 048

REACTIONS (2)
  - Haemoglobin abnormal [Recovered/Resolved]
  - Gastrointestinal haemorrhage [Recovered/Resolved]
